FAERS Safety Report 16079375 (Version 1)
Quarter: 2019Q1

REPORT INFORMATION
  Report Type: Spontaneous
  Country: US (occurrence: US)
  Receive Date: 20190315
  Receipt Date: 20190315
  Transmission Date: 20190418
  Serious: Yes (Other)
  Sender: FDA-Public Use
  Company Number: PHEH2019US011057

PATIENT
  Sex: Female

DRUGS (1)
  1. KISQALI [Suspect]
     Active Substance: RIBOCICLIB
     Indication: BREAST CANCER
     Dosage: 200 MG, TID
     Route: 048

REACTIONS (10)
  - Bone cancer [Unknown]
  - Back pain [Unknown]
  - Chest pain [Unknown]
  - Diarrhoea [Unknown]
  - Dyspnoea [Unknown]
  - Chest discomfort [Unknown]
  - Vomiting [Unknown]
  - Hot flush [Unknown]
  - Dyspepsia [Unknown]
  - Second primary malignancy [Unknown]
